FAERS Safety Report 10249485 (Version 1)
Quarter: 2014Q2

REPORT INFORMATION
  Report Type: Spontaneous
  Country: CN (occurrence: CN)
  Receive Date: 20140620
  Receipt Date: 20140620
  Transmission Date: 20141212
  Serious: Yes (Life-Threatening)
  Sender: FDA-Public Use
  Company Number: CN-PFIZER INC-2014166478

PATIENT
  Sex: Male

DRUGS (1)
  1. PHARMORUBICIN [Suspect]
     Dosage: UNK
     Route: 043
     Dates: start: 20140617

REACTIONS (3)
  - Anaphylactic shock [Not Recovered/Not Resolved]
  - Generalised erythema [Unknown]
  - Vomiting [Unknown]
